FAERS Safety Report 7471840-X (Version None)
Quarter: 2011Q2

REPORT INFORMATION
  Report Type: 
  Country: None (occurrence: None)
  Receive Date: 20110511
  Receipt Date: 20100603
  Transmission Date: 20111010
  Serious: No
  Sender: FDA-Public Use
  Company Number: A0862755A

PATIENT
  Age: 58 Year
  Sex: Female

DRUGS (11)
  1. CLONAZEPAM [Concomitant]
  2. MAGNESIUM [Concomitant]
  3. FISH OIL [Concomitant]
  4. ZOLPIDEM TARTRATE [Concomitant]
  5. CALCIUM [Concomitant]
  6. TYKERB [Suspect]
     Indication: METASTASIS
     Dosage: 1250MG PER DAY
     Route: 048
     Dates: start: 20100525
  7. EFFEXOR [Concomitant]
  8. COMPAZINE [Concomitant]
  9. NEXIUM [Concomitant]
  10. XELODA [Suspect]
  11. VITAMIN B [Concomitant]

REACTIONS (11)
  - NAUSEA [None]
  - HEPATIC PAIN [None]
  - SKIN DISCOLOURATION [None]
  - DYSPEPSIA [None]
  - STOMATITIS [None]
  - SKIN CHAPPED [None]
  - CHROMATURIA [None]
  - VOMITING [None]
  - DIARRHOEA [None]
  - DECREASED APPETITE [None]
  - DYSPNOEA [None]
